FAERS Safety Report 5489456-3 (Version None)
Quarter: 2007Q4

REPORT INFORMATION
  Report Type: 
  Country: None (occurrence: None)
  Receive Date: 20071016
  Receipt Date: 20071016
  Transmission Date: 20080405
  Serious: Yes (Hospitalization, Other)
  Sender: FDA-Public Use
  Company Number: None

PATIENT
  Age: 19 Year
  Sex: Female
  Weight: 45.4 kg

DRUGS (22)
  1. CYCLOSPORINE 50MG/ML -250MG/5ML- BEDFORD [Suspect]
     Indication: IMMUNOSUPPRESSION
     Dosage: 3 MG/HR   IV DRIP
     Route: 041
     Dates: start: 20070105, end: 20070107
  2. CYCLOSPORINE 50MG/ML -250MG/5ML- BEDFORD [Suspect]
     Indication: LUNG TRANSPLANT
     Dosage: 3 MG/HR   IV DRIP
     Route: 041
     Dates: start: 20070105, end: 20070107
  3. LORATADINE [Concomitant]
  4. VITAMIN A [Concomitant]
  5. ADEKS [Concomitant]
  6. VITAMIN B6 [Concomitant]
  7. PREDNISONE [Concomitant]
  8. ESOMEPRAZOLE [Concomitant]
  9. AZITHROMYCIN [Concomitant]
  10. ADVAIR DISKUS 100/50 [Concomitant]
  11. OSCAL [Concomitant]
  12. FLUTICASONE PROPIONATE [Concomitant]
  13. INSULIN GLARGINE [Concomitant]
  14. SS INSULIN LISPRO [Concomitant]
  15. YASMIN [Concomitant]
  16. ISONIAZID [Concomitant]
  17. CITALOPRAM HYDROBROMIDE [Concomitant]
  18. MONTELUKAST SODIUM [Concomitant]
  19. ALBUTEROL [Concomitant]
  20. TOBI [Concomitant]
  21. PULMOZYME [Concomitant]
  22. CREON [Concomitant]

REACTIONS (3)
  - BLINDNESS CORTICAL [None]
  - DRUG TOXICITY [None]
  - VISUAL FIELD DEFECT [None]
